FAERS Safety Report 7621307-0 (Version None)
Quarter: 2011Q3

REPORT INFORMATION
  Report Type: 
  Country: None (occurrence: None)
  Receive Date: 20110719
  Receipt Date: 20110714
  Transmission Date: 20111222
  Serious: Yes (Hospitalization)
  Sender: FDA-Public Use
  Company Number: US-B.I. PHARMACEUTICALS,INC./RIDGEFIELD-2011-BP-17770BP

PATIENT
  Age: 71 Year
  Sex: Female

DRUGS (9)
  1. LASIX [Concomitant]
     Indication: FLUID RETENTION
  2. ZOLOFT [Concomitant]
     Indication: ANXIETY
  3. XANAX [Concomitant]
     Indication: ANXIETY
  4. POTASSIUM [Concomitant]
     Indication: ROUTINE HEALTH MAINTENANCE
  5. GLUCOPHAGE [Concomitant]
     Indication: DIABETES MELLITUS
  6. PROCARDIA [Concomitant]
     Indication: ATRIAL FIBRILLATION
  7. ASPIRIN [Concomitant]
     Indication: ROUTINE HEALTH MAINTENANCE
  8. PRADAXA [Suspect]
     Indication: ATRIAL FIBRILLATION
     Route: 048
     Dates: start: 20110301, end: 20110601
  9. METFORMIN HCL [Concomitant]
     Indication: DIABETES MELLITUS

REACTIONS (3)
  - RECTAL HAEMORRHAGE [None]
  - BALANCE DISORDER [None]
  - FALL [None]
